FAERS Safety Report 14530118 (Version 5)
Quarter: 2019Q3

REPORT INFORMATION
  Report Type: Spontaneous
  Country: GB (occurrence: GB)
  Receive Date: 20180214
  Receipt Date: 20190711
  Transmission Date: 20191004
  Serious: Yes (Hospitalization, Other)
  Sender: FDA-Public Use
  Company Number: GB-AUROBINDO-AUR-APL-2018-006168

PATIENT

DRUGS (10)
  1. VITAMIN D3 [Concomitant]
     Active Substance: CHOLECALCIFEROL
     Indication: PRODUCT USED FOR UNKNOWN INDICATION
     Dosage: UNK, QW (1)
     Route: 065
  2. CLOZAPINE. [Suspect]
     Active Substance: CLOZAPINE
     Dosage: 100 MILLIGRAM, ONCE A DAY (AM)
     Route: 065
  3. CLOZARIL [Suspect]
     Active Substance: CLOZAPINE
     Indication: SCHIZOPHRENIA
     Dosage: 400 MILLIGRAM, ONCE A DAY (200 MG, BID)
     Route: 048
     Dates: start: 20060718
  4. PHENYTOIN. [Suspect]
     Active Substance: PHENYTOIN
     Indication: PRODUCT USED FOR UNKNOWN INDICATION
     Dosage: UNK
     Route: 065
  5. ATORVASTATIN [Concomitant]
     Active Substance: ATORVASTATIN
     Indication: PRODUCT USED FOR UNKNOWN INDICATION
     Dosage: 80 MILLIGRAM, ONCE A DAY (PM)
     Route: 065
  6. CLOZAPINE. [Suspect]
     Active Substance: CLOZAPINE
     Indication: PRODUCT USED FOR UNKNOWN INDICATION
     Dosage: 450 MILLIGRAM, ONCE A DAY (PM)
     Route: 065
  7. SODIUM VALPROATE [Suspect]
     Active Substance: VALPROATE SODIUM
     Indication: SEIZURE
     Dosage: 800 MILLIGRAM, ONCE A DAY (400 MG, BID)
     Route: 048
     Dates: start: 201707
  8. HYOSCINE [Concomitant]
     Active Substance: SCOPOLAMINE
     Indication: PRODUCT USED FOR UNKNOWN INDICATION
     Dosage: 150 MICROGRAM, ONCE A DAY (PM)
     Route: 065
  9. HALOPERIDOL. [Concomitant]
     Active Substance: HALOPERIDOL
     Indication: PRODUCT USED FOR UNKNOWN INDICATION
     Dosage: 10 MILLIGRAM, ONCE A DAY (PM)
     Route: 065
  10. MIRTAZAPINE. [Concomitant]
     Active Substance: MIRTAZAPINE
     Indication: PRODUCT USED FOR UNKNOWN INDICATION
     Dosage: 45 MILLIGRAM, ONCE A DAY (PM)
     Route: 065

REACTIONS (17)
  - Generalised tonic-clonic seizure [Unknown]
  - Gait disturbance [Unknown]
  - Hypercholesterolaemia [Unknown]
  - Alanine aminotransferase increased [Unknown]
  - Antipsychotic drug level above therapeutic [Not Recovered/Not Resolved]
  - Hyponatraemia [Unknown]
  - Physical disability [Unknown]
  - Condition aggravated [Unknown]
  - Infection [Unknown]
  - Glomerular filtration rate decreased [Unknown]
  - Mobility decreased [Unknown]
  - Blood alkaline phosphatase increased [Not Recovered/Not Resolved]
  - Electroencephalogram abnormal [Unknown]
  - Thrombocytopenia [Recovering/Resolving]
  - Balance disorder [Unknown]
  - Fall [Unknown]
  - Antipsychotic drug level below therapeutic [Unknown]

NARRATIVE: CASE EVENT DATE: 201608
